FAERS Safety Report 22001054 (Version 2)
Quarter: 2023Q1

REPORT INFORMATION
  Report Type: Spontaneous
  Country: US (occurrence: US)
  Receive Date: 20230216
  Receipt Date: 20230313
  Transmission Date: 20230418
  Serious: Yes (Other)
  Sender: FDA-Public Use
  Company Number: US-BAYER-2023P010703

PATIENT
  Age: 27 Year
  Sex: Male

DRUGS (2)
  1. JIVI [Suspect]
     Active Substance: DAMOCTOCOG ALFA PEGOL
     Dosage: 5000 U (EVERY 5 DAYS AND PRN)
     Route: 042
  2. JIVI [Suspect]
     Active Substance: DAMOCTOCOG ALFA PEGOL
     Dosage: 2 DF, ONCE (TO TREAT THE BLEED)
     Route: 042
     Dates: start: 20230208, end: 20230208

REACTIONS (2)
  - Haemarthrosis [None]
  - Joint injury [None]

NARRATIVE: CASE EVENT DATE: 20230208
